FAERS Safety Report 6233000-X (Version None)
Quarter: 2009Q2

REPORT INFORMATION
  Report Type: 
  Country: None (occurrence: None)
  Receive Date: 20090617
  Receipt Date: 20090610
  Transmission Date: 20091009
  Serious: Yes (Other)
  Sender: FDA-Public Use
  Company Number: A0776232A

PATIENT
  Sex: Female
  Weight: 61 kg

DRUGS (3)
  1. LAPATINIB [Suspect]
     Dosage: 750MG PER DAY
     Route: 048
     Dates: start: 20081211
  2. DOCETAXEL [Suspect]
     Dosage: 100MGM2 CYCLIC
     Route: 042
     Dates: start: 20081211
  3. TRASTUZUMAB [Suspect]
     Dosage: 4MGK WEEKLY
     Route: 042
     Dates: start: 20081211

REACTIONS (3)
  - CARDIAC FAILURE [None]
  - DYSPNOEA [None]
  - FATIGUE [None]
